FAERS Safety Report 16045697 (Version 1)
Quarter: 2019Q1

REPORT INFORMATION
  Report Type: Spontaneous
  Country: US (occurrence: US)
  Receive Date: 20190307
  Receipt Date: 20190307
  Transmission Date: 20190418
  Serious: Yes (Other)
  Sender: FDA-Public Use
  Company Number: US-009507513-1903USA001375

PATIENT
  Sex: Female
  Weight: 58 kg

DRUGS (1)
  1. BRIDION [Suspect]
     Active Substance: SUGAMMADEX
     Indication: NEUROMUSCULAR BLOCKADE REVERSAL
     Dosage: 200 MILLIGRAM, INJECTION
     Dates: start: 20190228

REACTIONS (2)
  - Incorrect dose administered [Unknown]
  - Bradycardia [Unknown]

NARRATIVE: CASE EVENT DATE: 20190228
